FAERS Safety Report 8922075 (Version 1)
Quarter: 2012Q4

REPORT INFORMATION
  Report Type: 
  Country: GB (occurrence: GB)
  Receive Date: 20121123
  Receipt Date: 20121123
  Transmission Date: 20130627
  Serious: Yes (Other)
  Sender: FDA-Public Use
  Company Number: GB-009507513-1211GBR008438

PATIENT
  Age: 72 Year
  Sex: Female
  Weight: 87 kg

DRUGS (14)
  1. SITAGLIPTIN PHOSPHATE [Suspect]
     Dosage: UNK
     Route: 048
     Dates: start: 20121107
  2. AMITRIPTYLINE HYDROCHLORIDE [Concomitant]
     Dosage: UNK
     Dates: start: 20120716
  3. ASPIRIN [Concomitant]
     Dosage: UNK
     Dates: start: 20120716
  4. ATENOLOL [Concomitant]
     Dosage: UNK
     Dates: start: 20120716
  5. ATORVASTATIN [Concomitant]
     Dosage: UNK
     Dates: start: 20120716
  6. BETAHISTINE [Concomitant]
     Dosage: UNK
     Dates: start: 20120716
  7. DIBUCAINE [Concomitant]
     Dosage: UNK
     Dates: start: 20121010, end: 20121107
  8. CLOTRIMAZOLE [Concomitant]
     Dosage: UNK
     Dates: start: 20121010
  9. FUROSEMIDE [Concomitant]
     Dosage: UNK
     Dates: start: 20120716
  10. GLIMEPIRIDE [Concomitant]
     Dosage: UNK
     Dates: start: 20120716, end: 20120907
  11. LEVOTHYROXINE SODIUM [Concomitant]
     Dosage: UNK
     Dates: start: 20120716
  12. METFORMIN [Concomitant]
     Dosage: UNK
     Dates: start: 20120716
  13. OMEPRAZOLE [Concomitant]
     Dosage: UNK
     Dates: start: 20120716
  14. RAMIPRIL [Concomitant]
     Dosage: UNK
     Dates: start: 20120716

REACTIONS (1)
  - Dyspnoea [Recovered/Resolved]
